FAERS Safety Report 9637882 (Version 1)
Quarter: 2013Q4

REPORT INFORMATION
  Report Type: Spontaneous
  Country: US (occurrence: None)
  Receive Date: 20131018
  Receipt Date: 20131018
  Transmission Date: 20140711
  Serious: Yes (Other)
  Sender: FDA-Public Use
  Company Number: 2013AP008941

PATIENT
  Age: 73 Year
  Sex: Female

DRUGS (1)
  1. PAROXETINE [Suspect]
     Indication: ANXIETY
     Route: 048

REACTIONS (4)
  - Hypersensitivity [None]
  - Pruritus generalised [None]
  - Urticaria [None]
  - Hyperkeratosis [None]
